FAERS Safety Report 21132682 (Version 1)
Quarter: 2022Q3

REPORT INFORMATION
  Report Type: Spontaneous
  Country: US (occurrence: US)
  Receive Date: 20220726
  Receipt Date: 20220726
  Transmission Date: 20221026
  Serious: No
  Sender: FDA-Public Use
  Company Number: US-PFIZER INC-202200999991

PATIENT
  Age: 49 Year
  Sex: Female

DRUGS (2)
  1. PAXLOVID [Suspect]
     Active Substance: NIRMATRELVIR\RITONAVIR
     Indication: COVID-19 treatment
     Dosage: UNK
     Dates: start: 20220721
  2. PEPTO-BISMOL [Concomitant]
     Active Substance: BISMUTH SUBSALICYLATE
     Dosage: UNK

REACTIONS (5)
  - Dizziness [Unknown]
  - Taste disorder [Unknown]
  - Nausea [Unknown]
  - Chest discomfort [Unknown]
  - Somnolence [Unknown]

NARRATIVE: CASE EVENT DATE: 20220721
